APPROVED DRUG PRODUCT: ADENOSINE
Active Ingredient: ADENOSINE
Strength: 3MG/ML
Dosage Form/Route: INJECTABLE;INJECTION
Application: A078640 | Product #001
Applicant: PHARMOBEDIENT CONSULTING LLC
Approved: Mar 21, 2014 | RLD: No | RS: No | Type: DISCN